FAERS Safety Report 20186692 (Version 1)
Quarter: 2021Q4

REPORT INFORMATION
  Report Type: Spontaneous
  Country: ES (occurrence: ES)
  Receive Date: 20211215
  Receipt Date: 20211215
  Transmission Date: 20220303
  Serious: Yes (Life-Threatening)
  Sender: FDA-Public Use
  Company Number: None

PATIENT
  Age: 32 Year
  Sex: Female

DRUGS (5)
  1. TRAZODONE [Interacting]
     Active Substance: TRAZODONE HYDROCHLORIDE
     Indication: Suicide attempt
     Dosage: 3 G (TOTAL, 30 COMPRIMIDOS DE 100 MG)
     Route: 048
     Dates: start: 20200929, end: 20200929
  2. LORAZEPAM [Interacting]
     Active Substance: LORAZEPAM
     Indication: Suicide attempt
     Dosage: 60 MG (1 TOTAL)
     Route: 048
     Dates: start: 20200929, end: 20200929
  3. PREGABALIN [Interacting]
     Active Substance: PREGABALIN
     Indication: Suicide attempt
     Dosage: 625 MG (1 TOTAL)
     Route: 048
     Dates: start: 20200929, end: 20200929
  4. FENTANYL [Interacting]
     Active Substance: FENTANYL
     Indication: Suicide attempt
     Dosage: 2 DOSAGE FORM, QD (2 PARCHES DE FENTANILO)
     Route: 062
     Dates: start: 20200929, end: 20200929
  5. AMITRIPTYLINE HYDROCHLORIDE [Interacting]
     Active Substance: AMITRIPTYLINE HYDROCHLORIDE
     Indication: Suicide attempt
     Dosage: 625 MG (1 TOTAL)
     Route: 048
     Dates: start: 20200929, end: 20200929

REACTIONS (2)
  - Acute respiratory failure [Recovered/Resolved]
  - Depressed level of consciousness [Recovered/Resolved]

NARRATIVE: CASE EVENT DATE: 20200929
